FAERS Safety Report 7115762-2 (Version None)
Quarter: 2010Q4

REPORT INFORMATION
  Report Type: 
  Country: None (occurrence: None)
  Receive Date: 20101122
  Receipt Date: 20101104
  Transmission Date: 20110411
  Serious: Yes (Death, Hospitalization, Other)
  Sender: FDA-Public Use
  Company Number: US-AMGEN-US357690

PATIENT

DRUGS (13)
  1. NPLATE [Suspect]
     Indication: IDIOPATHIC THROMBOCYTOPENIC PURPURA
     Dosage: 10 A?G/KG, QWK
     Route: 058
     Dates: start: 20090122, end: 20090630
  2. NPLATE [Suspect]
     Dates: start: 20090122, end: 20090630
  3. RITUXIMAB [Concomitant]
  4. MESALAZINE [Concomitant]
     Dosage: 400 MG, TID
     Dates: start: 20020212
  5. AMLODIPINE BESYLATE [Concomitant]
  6. INSULIN [Concomitant]
     Dosage: UNK UNK, UNK
     Dates: start: 20020201
  7. ATENOLOL [Concomitant]
     Dosage: UNK UNK, UNK
     Dates: start: 20020201
  8. PANTOPRAZOLE SODIUM [Concomitant]
  9. MOMETASONE FUROATE [Concomitant]
     Dosage: UNK UNK, BID
     Route: 055
  10. ARANESP [Concomitant]
     Dosage: UNK UNK, Q4WK
  11. RED BLOOD CELLS [Concomitant]
     Dosage: UNK UNK, UNK
     Dates: start: 20090616
  12. PLAVIX [Concomitant]
  13. COUMADIN [Concomitant]

REACTIONS (14)
  - ANXIETY [None]
  - CONTUSION [None]
  - DEATH [None]
  - DYSPNOEA EXERTIONAL [None]
  - FALL [None]
  - HYPERSENSITIVITY [None]
  - HYPOGLYCAEMIA [None]
  - PETECHIAE [None]
  - PNEUMONIA [None]
  - RENAL FAILURE ACUTE [None]
  - RHABDOMYOLYSIS [None]
  - THERAPEUTIC RESPONSE DECREASED [None]
  - THROMBOCYTOPENIA [None]
  - TRANSIENT ISCHAEMIC ATTACK [None]
